FAERS Safety Report 8429671-X (Version None)
Quarter: 2012Q2

REPORT INFORMATION
  Report Type: 
  Country: None (occurrence: None)
  Receive Date: 20120604
  Receipt Date: 20120521
  Transmission Date: 20120825
  Serious: Yes (Other)
  Sender: FDA-Public Use
  Company Number: FK201201438

PATIENT
  Age: 42 Year
  Sex: Female

DRUGS (1)
  1. ADENOSINE [Suspect]
     Indication: CARDIAC STRESS TEST
     Dosage: INTRAVENOUS (NOT OTHERWISE SPECIFIED)
     Route: 042

REACTIONS (4)
  - ARTERIOSPASM CORONARY [None]
  - CARDIAC ARREST [None]
  - LOSS OF CONSCIOUSNESS [None]
  - CONVULSION [None]
